FAERS Safety Report 11031504 (Version 4)
Quarter: 2015Q3

REPORT INFORMATION
  Report Type: Spontaneous
  Country: US (occurrence: US)
  Receive Date: 20150415
  Receipt Date: 20150709
  Transmission Date: 20151125
  Serious: No
  Sender: FDA-Public Use
  Company Number: US-PFIZER INC-2015129632

PATIENT
  Age: 66 Year
  Sex: Female

DRUGS (6)
  1. BENEFIBER [Concomitant]
     Active Substance: STARCH, WHEAT
     Indication: FAECES HARD
     Dosage: UNK
     Dates: start: 201402
  2. LISINOPRIL HCTZ [Concomitant]
     Active Substance: HYDROCHLOROTHIAZIDE\LISINOPRIL
     Indication: BLOOD PRESSURE MEASUREMENT
     Dosage: UNK (5 MG, 10-12 HCT)
     Dates: start: 201502
  3. IRON + VITAMIN C [Concomitant]
     Dosage: 65 MG, UNK
     Dates: start: 2014
  4. GLIMEPIRIDE. [Concomitant]
     Active Substance: GLIMEPIRIDE
     Indication: TYPE 2 DIABETES MELLITUS
     Dosage: 4 MG, 1X/DAY
     Dates: start: 201412
  5. LYRICA [Suspect]
     Active Substance: PREGABALIN
     Indication: BURNING FEET SYNDROME
     Dosage: 150 MG, 2X/DAY
     Dates: start: 2007
  6. POTASSIUM CHLORIDE. [Concomitant]
     Active Substance: POTASSIUM CHLORIDE
     Dosage: 99 MG, 1X/DAY

REACTIONS (1)
  - Ear infection [Unknown]
